FAERS Safety Report 25433207 (Version 3)
Quarter: 2025Q4

REPORT INFORMATION
  Report Type: Report from Study
  Country: EU (occurrence: EU)
  Receive Date: 20250613
  Receipt Date: 20251204
  Transmission Date: 20260119
  Serious: Yes (Death, Life-Threatening, Hospitalization, Other)
  Sender: TEVA
  Company Number: EU-002147023-NVSC2025FR058462

PATIENT
  Sex: Female
  Weight: 83 kg

DRUGS (37)
  1. METFORMIN [Suspect]
     Active Substance: METFORMIN HYDROCHLORIDE
     Indication: Diabetes mellitus
     Dosage: (850 MG, TID)
     Route: 048
     Dates: end: 20250331
  2. AMIKACIN SULFATE [Concomitant]
     Active Substance: AMIKACIN SULFATE
     Indication: Product used for unknown indication
     Dosage: UNK
     Route: 065
  3. AMIKACIN SULFATE [Concomitant]
     Active Substance: AMIKACIN SULFATE
     Indication: Product used for unknown indication
     Dosage: UNK
     Route: 065
  4. AMIKACIN SULFATE [Concomitant]
     Active Substance: AMIKACIN SULFATE
     Indication: Product used for unknown indication
     Dosage: UNK
     Route: 065
  5. AMIKACIN SULFATE [Concomitant]
     Active Substance: AMIKACIN SULFATE
     Indication: Product used for unknown indication
     Dosage: UNK
     Route: 065
  6. AMIKACIN SULFATE [Concomitant]
     Active Substance: AMIKACIN SULFATE
     Indication: Product used for unknown indication
     Dosage: UNK
     Route: 065
  7. NOREPINEPHRINE BITARTRATE [Concomitant]
     Active Substance: NOREPINEPHRINE BITARTRATE
     Indication: Product used for unknown indication
     Dosage: UNK (FAST INCREASE UP TO 20 MG/H)
     Route: 065
  8. NOREPINEPHRINE BITARTRATE [Concomitant]
     Active Substance: NOREPINEPHRINE BITARTRATE
     Indication: Product used for unknown indication
     Dosage: UNK
     Route: 065
  9. NOREPINEPHRINE BITARTRATE [Concomitant]
     Active Substance: NOREPINEPHRINE BITARTRATE
     Indication: Product used for unknown indication
     Dosage: UNK
     Route: 065
  10. NOREPINEPHRINE BITARTRATE [Concomitant]
     Active Substance: NOREPINEPHRINE BITARTRATE
     Indication: Product used for unknown indication
     Dosage: UNK
     Route: 065
  11. NOREPINEPHRINE BITARTRATE [Concomitant]
     Active Substance: NOREPINEPHRINE BITARTRATE
     Indication: Product used for unknown indication
     Dosage: UNK
     Route: 065
  12. KISQALI [Suspect]
     Active Substance: RIBOCICLIB SUCCINATE
     Indication: Intraductal proliferative breast lesion
     Dosage: 600 MG, QD
     Route: 048
     Dates: start: 20250326, end: 20250331
  13. MIDAZOLAM [Concomitant]
     Active Substance: MIDAZOLAM
     Indication: Product used for unknown indication
     Dosage: UNK
     Route: 065
  14. MIDAZOLAM [Concomitant]
     Active Substance: MIDAZOLAM
     Indication: Product used for unknown indication
     Dosage: UNK
     Route: 065
  15. MIDAZOLAM [Concomitant]
     Active Substance: MIDAZOLAM
     Indication: Product used for unknown indication
     Dosage: UNK
     Route: 065
  16. MIDAZOLAM [Concomitant]
     Active Substance: MIDAZOLAM
     Indication: Product used for unknown indication
     Dosage: UNK
     Route: 065
  17. MIDAZOLAM [Concomitant]
     Active Substance: MIDAZOLAM
     Indication: Product used for unknown indication
     Dosage: UNK
     Route: 065
  18. INSULIN NOS [Concomitant]
     Active Substance: INSULIN NOS
     Indication: Product used for unknown indication
     Dosage: UNK
     Route: 065
  19. INSULIN NOS [Concomitant]
     Active Substance: INSULIN NOS
     Indication: Product used for unknown indication
     Dosage: UNK
     Route: 065
  20. INSULIN NOS [Concomitant]
     Active Substance: INSULIN NOS
     Indication: Product used for unknown indication
     Dosage: UNK
     Route: 065
  21. INSULIN NOS [Concomitant]
     Active Substance: INSULIN NOS
     Indication: Product used for unknown indication
     Dosage: UNK
     Route: 065
  22. INSULIN NOS [Concomitant]
     Active Substance: INSULIN NOS
     Indication: Product used for unknown indication
     Dosage: UNK (VIA AN ELECTRONIC PUMP)
     Route: 065
  23. LETROZOLE [Suspect]
     Active Substance: LETROZOLE
     Indication: Hormone therapy
     Dosage: 2.5 MG, QD (1 TABLET PER DAY)
     Route: 048
     Dates: start: 20250326, end: 20250331
  24. SPIRAMYCIN [Concomitant]
     Active Substance: SPIRAMYCIN
     Indication: Respiratory tract infection
     Dosage: UNK
     Route: 065
  25. SPIRAMYCIN [Concomitant]
     Active Substance: SPIRAMYCIN
     Indication: Respiratory tract infection
     Dosage: UNK
     Route: 065
  26. SPIRAMYCIN [Concomitant]
     Active Substance: SPIRAMYCIN
     Indication: Respiratory tract infection
     Dosage: UNK
     Route: 065
  27. SPIRAMYCIN [Concomitant]
     Active Substance: SPIRAMYCIN
     Indication: Respiratory tract infection
     Dosage: UNK
     Route: 065
  28. SPIRAMYCIN [Concomitant]
     Active Substance: SPIRAMYCIN
     Indication: Respiratory tract infection
     Dosage: UNK
     Route: 065
  29. SPIRAMYCIN [Concomitant]
     Active Substance: SPIRAMYCIN
     Indication: Respiratory tract infection
     Dosage: UNK
     Route: 065
  30. OMEPRAZOLE [Concomitant]
     Active Substance: OMEPRAZOLE
     Indication: Peptic ulcer
     Dosage: 20 MG
     Route: 048
  31. OXAZEPAM [Concomitant]
     Active Substance: OXAZEPAM
     Indication: Anxiety
     Dosage: UNK
     Route: 065
  32. Loxen [Concomitant]
     Indication: Blood pressure increased
     Dosage: 100 MG
     Route: 048
  33. DAPAGLIFLOZIN [Concomitant]
     Active Substance: DAPAGLIFLOZIN
     Indication: Diabetes mellitus
     Dosage: 10 MG
     Route: 065
  34. FUROSEMIDE [Concomitant]
     Active Substance: FUROSEMIDE
     Indication: Cardiac failure
     Route: 048
  35. KERLONE [Concomitant]
     Active Substance: BETAXOLOL HYDROCHLORIDE
     Indication: Hypertension
     Dosage: 20 MG
     Route: 048
  36. CHOLECALCIFEROL [Concomitant]
     Active Substance: CHOLECALCIFEROL
     Indication: Peptic ulcer
     Dosage: UNK, VIAL ORAL
     Route: 048
  37. IRBESARTAN [Concomitant]
     Active Substance: IRBESARTAN
     Indication: Hypertension
     Route: 048

REACTIONS (16)
  - Death [Fatal]
  - Nausea [Fatal]
  - Vomiting [Fatal]
  - Dyspepsia [Unknown]
  - Toxicity to various agents [Unknown]
  - Hypothermia [Recovering/Resolving]
  - Diarrhoea [Fatal]
  - Dyspnoea [Not Recovered/Not Resolved]
  - Diabetic ketoacidosis [Fatal]
  - Multiple organ dysfunction syndrome [Unknown]
  - Gastrointestinal disorder [Fatal]
  - Acute kidney injury [Fatal]
  - Hyperlactacidaemia [Not Recovered/Not Resolved]
  - Metabolic acidosis [Fatal]
  - Acetonaemia [Unknown]
  - Hypotension [Unknown]

NARRATIVE: CASE EVENT DATE: 20250330
